FAERS Safety Report 8165644-2 (Version None)
Quarter: 2012Q1

REPORT INFORMATION
  Report Type: 
  Country: None (occurrence: None)
  Receive Date: 20120103
  Receipt Date: 20111019
  Transmission Date: 20120608
  Serious: No
  Sender: FDA-Public Use
  Company Number: AE-2011-002480

PATIENT
  Age: 58 Year
  Sex: Male

DRUGS (8)
  1. EFFEXOR [Concomitant]
  2. AMBIEN [Concomitant]
  3. RAMIRAL (MIRTAZAPINE) [Concomitant]
  4. OXYBUTYNIN XR (OXYBUTYNIN) [Concomitant]
  5. INCIVEK [Suspect]
     Dosage: 6 (3, 2 IN 1 D), ORAL
     Route: 048
     Dates: start: 20110929
  6. PEGASYS [Concomitant]
  7. RIBAVIRIN [Concomitant]
  8. TETRASODIUM (SODIUM PYROPHOSPHATE) [Concomitant]

REACTIONS (4)
  - PROCTALGIA [None]
  - INSOMNIA [None]
  - HAEMORRHOIDAL HAEMORRHAGE [None]
  - ANAL PRURITUS [None]
